FAERS Safety Report 5968866-1 (Version None)
Quarter: 2008Q4

REPORT INFORMATION
  Report Type: 
  Country: None (occurrence: None)
  Receive Date: 20081119
  Receipt Date: 20081014
  Transmission Date: 20090506
  Serious: No
  Sender: FDA-Public Use
  Company Number: WAES 0810USA02510

PATIENT
  Age: 69 Year
  Sex: Male

DRUGS (3)
  1. JANUVIA [Suspect]
     Indication: GLUCOSE TOLERANCE IMPAIRED
     Dosage: 25 MG/DAILY : 50 MG/DAILY
     Dates: start: 20080101, end: 20080101
  2. JANUVIA [Suspect]
     Indication: GLUCOSE TOLERANCE IMPAIRED
     Dosage: 25 MG/DAILY : 50 MG/DAILY
     Dates: start: 20080101, end: 20081010
  3. [THERAPY UNSPECIFIED] [Concomitant]

REACTIONS (6)
  - COLD SWEAT [None]
  - DRUG INEFFECTIVE [None]
  - DYSPNOEA [None]
  - SKIN WARM [None]
  - SLEEP APNOEA SYNDROME [None]
  - WHEEZING [None]
